FAERS Safety Report 20763725 (Version 3)
Quarter: 2022Q3

REPORT INFORMATION
  Report Type: Report from Study
  Country: US (occurrence: US)
  Receive Date: 20220428
  Receipt Date: 20220920
  Transmission Date: 20221027
  Serious: Yes (Other)
  Sender: FDA-Public Use
  Company Number: US-BRISTOL-MYERS SQUIBB COMPANY-2022-024199

PATIENT
  Age: 71 Year
  Sex: Female
  Weight: 62.14 kg

DRUGS (8)
  1. REVLIMID [Suspect]
     Active Substance: LENALIDOMIDE
     Indication: Plasma cell myeloma
     Route: 065
  2. REVLIMID [Suspect]
     Active Substance: LENALIDOMIDE
     Dosage: FREQUENCY: 1 CAPSULE EVERY OTHER DAY ON DAYS 1 THROUGH 21 EVERY 28 DAYS
     Route: 048
     Dates: start: 201903
  3. ZETIA [Suspect]
     Active Substance: EZETIMIBE
     Indication: Product used for unknown indication
     Route: 065
  4. DARZALEX [Suspect]
     Active Substance: DARATUMUMAB
     Indication: Product used for unknown indication
     Route: 065
  5. OVIIT VITAMIN D 1000 [Concomitant]
     Dosage: 10 MCG TABLET
  6. XTAMPZA ER [Concomitant]
     Active Substance: OXYCODONE
     Dosage: SPR 12
  7. DEXAMETHASONE [Concomitant]
     Active Substance: DEXAMETHASONE
  8. ASPIRIN [Concomitant]
     Active Substance: ASPIRIN

REACTIONS (7)
  - Acquired cerebral palsy [Unknown]
  - Off label use [Unknown]
  - Dizziness [Unknown]
  - Blood pressure fluctuation [Unknown]
  - Dyspnoea [Unknown]
  - Blood pressure increased [Unknown]
  - Hypotension [Unknown]

NARRATIVE: CASE EVENT DATE: 20190301
